FAERS Safety Report 9781049 (Version 1)
Quarter: 2013Q4

REPORT INFORMATION
  Report Type: Spontaneous
  Country: US (occurrence: None)
  Receive Date: 20131220
  Receipt Date: 20131220
  Transmission Date: 20140711
  Serious: No
  Sender: FDA-Public Use
  Company Number: SYN-0585-2013

PATIENT
  Age: 80 Year
  Sex: Male
  Weight: 55.79 kg

DRUGS (1)
  1. TAMSULOSIN HYDROCHLORIDE [Suspect]
     Indication: BENIGN PROSTATIC HYPERPLASIA
     Route: 048
     Dates: start: 2011, end: 201312

REACTIONS (4)
  - Muscular weakness [None]
  - Dizziness [None]
  - Constipation [None]
  - Nausea [None]
